FAERS Safety Report 17520562 (Version 1)
Quarter: 2020Q1

REPORT INFORMATION
  Report Type: Spontaneous
  Country: US (occurrence: US)
  Receive Date: 20200302
  Receipt Date: 20200302
  Transmission Date: 20200409
  Serious: No
  Sender: FDA-Public Use
  Company Number: None

PATIENT
  Age: 73 Year
  Sex: Male
  Weight: 58.97 kg

DRUGS (1)
  1. QUETIAPINE (QUETIAPINE FUMARATE 25MG TAB) [Suspect]
     Active Substance: QUETIAPINE
     Route: 048
     Dates: start: 20190919, end: 20190923

REACTIONS (3)
  - Dizziness [None]
  - Hallucination [None]
  - Agitation [None]

NARRATIVE: CASE EVENT DATE: 20190923
